FAERS Safety Report 16155709 (Version 2)
Quarter: 2019Q2

REPORT INFORMATION
  Report Type: Spontaneous
  Country: PH (occurrence: PH)
  Receive Date: 20190404
  Receipt Date: 20190527
  Transmission Date: 20190711
  Serious: Yes (Death, Life-Threatening, Other)
  Sender: FDA-Public Use
  Company Number: PH-BRISTOL-MYERS SQUIBB COMPANY-BMS-2019-032136

PATIENT
  Age: 28 Year
  Sex: Male

DRUGS (3)
  1. DASATINIB. [Suspect]
     Active Substance: DASATINIB
     Indication: CHRONIC MYELOID LEUKAEMIA
     Dosage: 140 MILLIGRAM (CURRENT DOSE)
     Route: 048
     Dates: start: 201902, end: 201903
  2. MEROPENEM. [Concomitant]
     Active Substance: MEROPENEM
     Indication: SEPSIS
     Dosage: 1 GRAM
     Route: 042
     Dates: start: 201902
  3. PIPERACILLIN AND TAZOBACTAM [Concomitant]
     Active Substance: PIPERACILLIN SODIUM\TAZOBACTAM SODIUM
     Indication: SEPSIS
     Dosage: 4.5 GRAM
     Route: 042
     Dates: start: 201902

REACTIONS (4)
  - Epistaxis [Unknown]
  - Sepsis [Fatal]
  - Cytopenia [Fatal]
  - Blast crisis in myelogenous leukaemia [Unknown]

NARRATIVE: CASE EVENT DATE: 201903
